FAERS Safety Report 11446623 (Version 1)
Quarter: 2015Q3

REPORT INFORMATION
  Report Type: Spontaneous
  Country: US (occurrence: US)
  Receive Date: 20150831
  Receipt Date: 20150831
  Transmission Date: 20151125
  Serious: Yes (Other)
  Sender: FDA-Public Use
  Company Number: US-ELI_LILLY_AND_COMPANY-US200809001971

PATIENT
  Age: 38 Year
  Sex: Female

DRUGS (5)
  1. CYMBALTA [Suspect]
     Active Substance: DULOXETINE HYDROCHLORIDE
     Indication: FIBROMYALGIA
     Dosage: 30 MG, DAILY (1/D)
     Dates: start: 20080830, end: 20080830
  2. TOPAMAX [Concomitant]
     Active Substance: TOPIRAMATE
  3. GABAPENTIN. [Concomitant]
     Active Substance: GABAPENTIN
  4. VICODIN [Concomitant]
     Active Substance: ACETAMINOPHEN\HYDROCODONE BITARTRATE
     Dates: start: 200808
  5. CONTRACEPTIVES NOS [Concomitant]
     Active Substance: UNSPECIFIED INGREDIENT

REACTIONS (13)
  - Fall [Recovered/Resolved]
  - Nausea [Recovered/Resolved]
  - Diarrhoea [Recovered/Resolved]
  - Feeling drunk [Recovered/Resolved]
  - Pain [Recovered/Resolved]
  - Headache [Recovered/Resolved]
  - Gait disturbance [Recovered/Resolved]
  - Vision blurred [Recovered/Resolved]
  - Serotonin syndrome [Recovered/Resolved]
  - Feeling abnormal [Recovered/Resolved]
  - Photophobia [Recovered/Resolved]
  - Pupils unequal [Recovered/Resolved]
  - Cold sweat [Recovered/Resolved]

NARRATIVE: CASE EVENT DATE: 20080831
